FAERS Safety Report 14974654 (Version 1)
Quarter: 2018Q2

REPORT INFORMATION
  Report Type: Report from Study
  Country: None (occurrence: DE)
  Receive Date: 20180605
  Receipt Date: 20180605
  Transmission Date: 20180711
  Serious: Yes (Hospitalization)
  Sender: FDA-Public Use
  Company Number: DE-ABBVIE-18K-062-2376541-00

PATIENT
  Sex: Male

DRUGS (3)
  1. PALEXIA [Concomitant]
     Active Substance: TAPENTADOL HYDROCHLORIDE
     Indication: PRODUCT USED FOR UNKNOWN INDICATION
  2. XARELTO [Concomitant]
     Active Substance: RIVAROXABAN
     Indication: PRODUCT USED FOR UNKNOWN INDICATION
  3. HUMIRA [Suspect]
     Active Substance: ADALIMUMAB
     Indication: PSORIATIC ARTHROPATHY
     Route: 058
     Dates: start: 20160315, end: 201803

REACTIONS (7)
  - Pain [Recovering/Resolving]
  - Nasopharyngitis [Recovered/Resolved]
  - Intervertebral disc protrusion [Recovered/Resolved]
  - Swelling face [Recovered/Resolved]
  - Spinal column stenosis [Recovering/Resolving]
  - Hypoaesthesia [Recovering/Resolving]
  - Swelling [Recovered/Resolved]

NARRATIVE: CASE EVENT DATE: 2017
